FAERS Safety Report 9911471 (Version 12)
Quarter: 2015Q3

REPORT INFORMATION
  Report Type: Report from Study
  Country: DE (occurrence: DE)
  Receive Date: 20140219
  Receipt Date: 20150910
  Transmission Date: 20151125
  Serious: Yes (Other)
  Sender: FDA-Public Use
  Company Number: PHHY2014DE012561

PATIENT
  Age: 35 Year
  Sex: Female
  Weight: 87 kg

DRUGS (4)
  1. GILENYA [Suspect]
     Active Substance: FINGOLIMOD HYDROCHLORIDE
     Indication: MULTIPLE SCLEROSIS
     Dosage: 0.25 MG, UNK
     Route: 048
     Dates: start: 20120501, end: 20131228
  2. BELOC-ZOC MITE [Concomitant]
     Active Substance: METOPROLOL SUCCINATE
     Indication: ARRHYTHMIA
     Dosage: 47.5 MG, QD
     Route: 048
  3. LAMOTRIGIN [Concomitant]
     Active Substance: LAMOTRIGINE
     Indication: PRODUCT USED FOR UNKNOWN INDICATION
     Dosage: 100 MG, QD
     Route: 048
  4. AMANTADIN [Concomitant]
     Active Substance: AMANTADINE
     Indication: FATIGUE
     Dosage: 25 MG, QD
     Route: 048

REACTIONS (7)
  - Multiple sclerosis relapse [Unknown]
  - Sleep disorder [Unknown]
  - Maternal exposure during pregnancy [Unknown]
  - Epilepsy [Unknown]
  - Muscle spasticity [Unknown]
  - Oedema [Unknown]
  - Prescribed underdose [Unknown]

NARRATIVE: CASE EVENT DATE: 20120501
